FAERS Safety Report 14476046 (Version 2)
Quarter: 2018Q1

REPORT INFORMATION
  Report Type: Spontaneous
  Country: FR (occurrence: FR)
  Receive Date: 20180201
  Receipt Date: 20180319
  Transmission Date: 20180509
  Serious: Yes (Life-Threatening)
  Sender: FDA-Public Use
  Company Number: FR-MYLANLABS-2018M1006002

PATIENT
  Age: 49 Year
  Sex: Female

DRUGS (6)
  1. SUFENTANIL [Suspect]
     Active Substance: SUFENTANIL
     Indication: ANAESTHESIA
     Dosage: 20 G, UNK
     Route: 042
  2. BLEU PATENTE V [Suspect]
     Active Substance: PATENT BLUE V
     Indication: ANAESTHESIA
     Dosage: 2 ML, UNK
     Route: 042
  3. REMIFENTANIL [Suspect]
     Active Substance: REMIFENTANIL
     Indication: PRODUCT USED FOR UNKNOWN INDICATION
     Dosage: 150 G, UNK
     Route: 042
  4. PROPOFOL. [Suspect]
     Active Substance: PROPOFOL
     Indication: ANAESTHESIA
     Dosage: 200 MG, UNK
     Route: 042
  5. LIDOCAINE. [Suspect]
     Active Substance: LIDOCAINE
     Indication: ANAESTHESIA
     Dosage: 60 MG, UNK
     Route: 042
  6. BLEU PATENTE V [Suspect]
     Active Substance: PATENT BLUE V
     Indication: VASCULAR TEST

REACTIONS (2)
  - Anaphylactic shock [Recovered/Resolved]
  - Urticaria [Recovered/Resolved]

NARRATIVE: CASE EVENT DATE: 20170803
